FAERS Safety Report 9092585 (Version 2)
Quarter: 2013Q4

REPORT INFORMATION
  Report Type: Spontaneous
  Country: US (occurrence: US)
  Receive Date: 20130201
  Receipt Date: 20131220
  Transmission Date: 20140711
  Serious: Yes (Hospitalization, Other)
  Sender: FDA-Public Use
  Company Number: US-BAYER-2013-013348

PATIENT
  Age: 24 Year
  Sex: Female

DRUGS (6)
  1. YASMIN [Suspect]
     Dosage: UNK
     Dates: start: 20080430
  2. OCELLA [Suspect]
     Dosage: UNK
     Dates: start: 20080430
  3. YAZ [Suspect]
     Dosage: UNK
     Dates: start: 20080430
  4. CITALOPRAM [Concomitant]
     Dosage: UNK
     Route: 048
     Dates: start: 20090214
  5. LEXAPRO [Concomitant]
     Dosage: UNK
     Route: 048
     Dates: start: 20090304
  6. ALEVE [Concomitant]
     Dosage: UNK
     Dates: start: 20090304

REACTIONS (8)
  - Gallbladder injury [None]
  - Cholecystitis [None]
  - Injury [None]
  - Pain [None]
  - Emotional distress [None]
  - General physical health deterioration [None]
  - Anxiety [None]
  - Pain [None]
